FAERS Safety Report 8459481-9 (Version None)
Quarter: 2012Q2

REPORT INFORMATION
  Report Type: 
  Country: None (occurrence: None)
  Receive Date: 20120622
  Receipt Date: 20120614
  Transmission Date: 20120825
  Serious: Yes (Other)
  Sender: FDA-Public Use
  Company Number: US-JNJFOC-20120607807

PATIENT
  Sex: Female

DRUGS (4)
  1. ASPIRIN [Concomitant]
     Indication: STENT PLACEMENT
     Route: 048
  2. PLAVIX [Concomitant]
     Indication: STENT PLACEMENT
  3. XARELTO [Suspect]
     Indication: ATRIAL FIBRILLATION
     Route: 048
  4. MULTIPLE MEDICATIONS [Concomitant]

REACTIONS (1)
  - ECCHYMOSIS [None]
